FAERS Safety Report 4290174-8 (Version None)
Quarter: 2004Q1

REPORT INFORMATION
  Report Type: 
  Country: None (occurrence: None)
  Receive Date: 20040209
  Receipt Date: 20040116
  Transmission Date: 20041129
  Serious: Yes (Hospitalization)
  Sender: FDA-Public Use
  Company Number: 204587

PATIENT
  Age: 30 Year
  Sex: Female

DRUGS (4)
  1. RITUXAN [Suspect]
     Indication: IDIOPATHIC THROMBOCYTOPENIC PURPURA
     Dosage: X3, INTRAVENOUS
     Route: 042
     Dates: start: 20031001, end: 20031001
  2. DEMEROL [Concomitant]
  3. CALCIUM (CALCIUM NOS) [Concomitant]
  4. BIRTH CONTROL PILL (ORAL CONTRACEPTIVE NOS) [Concomitant]

REACTIONS (11)
  - AGITATION [None]
  - ARTHRALGIA [None]
  - DEEP VEIN THROMBOSIS [None]
  - FUNGAL INFECTION [None]
  - GENERALISED OEDEMA [None]
  - MOOD SWINGS [None]
  - MYALGIA [None]
  - NERVOUSNESS [None]
  - PULMONARY EMBOLISM [None]
  - RASH GENERALISED [None]
  - SMEAR CERVIX ABNORMAL [None]
